FAERS Safety Report 19358463 (Version 3)
Quarter: 2024Q2

REPORT INFORMATION
  Report Type: Spontaneous
  Country: CR (occurrence: None)
  Receive Date: 20210531
  Receipt Date: 20240514
  Transmission Date: 20240715
  Serious: Yes (Death)
  Sender: FDA-Public Use
  Company Number: CR-ROCHE-2839726

PATIENT
  Age: 60 Year
  Sex: Male

DRUGS (2)
  1. TECENTRIQ [Suspect]
     Active Substance: ATEZOLIZUMAB
     Indication: Hepatocellular carcinoma
     Route: 065
     Dates: start: 202104, end: 202111
  2. AVASTIN [Suspect]
     Active Substance: BEVACIZUMAB
     Indication: Hepatocellular carcinoma
     Route: 065
     Dates: start: 202104, end: 202106

REACTIONS (4)
  - Gastrointestinal haemorrhage [Fatal]
  - Pyrexia [Unknown]
  - Hepatic failure [Fatal]
  - Gastric varices haemorrhage [Fatal]

NARRATIVE: CASE EVENT DATE: 20210601
